FAERS Safety Report 5815800-0 (Version None)
Quarter: 2008Q3

REPORT INFORMATION
  Report Type: 
  Country: None (occurrence: None)
  Receive Date: 20080714
  Receipt Date: 20070412
  Transmission Date: 20090109
  Serious: Yes (Other)
  Sender: FDA-Public Use
  Company Number: 012488

PATIENT
  Age: 39 Year
  Sex: Female

DRUGS (1)
  1. ENJUVIA [Suspect]
     Indication: ARTIFICIAL MENOPAUSE
     Dosage: ORAL
     Route: 048

REACTIONS (2)
  - PAIN IN EXTREMITY [None]
  - THROMBOSIS [None]
